FAERS Safety Report 11045029 (Version 1)
Quarter: 2015Q2

REPORT INFORMATION
  Report Type: Spontaneous
  Country: US (occurrence: US)
  Receive Date: 20150417
  Receipt Date: 20150417
  Transmission Date: 20150821
  Serious: Yes (Hospitalization, Other)
  Sender: FDA-Public Use
  Company Number: US-ELI_LILLY_AND_COMPANY-US201504004891

PATIENT
  Age: 77 Year
  Sex: Male
  Weight: 71.66 kg

DRUGS (1)
  1. HUMALOG [Suspect]
     Active Substance: INSULIN LISPRO
     Indication: PRODUCT USED FOR UNKNOWN INDICATION
     Route: 058

REACTIONS (6)
  - Diabetic ketoacidosis [Unknown]
  - Blood glucose increased [Unknown]
  - Pain [Unknown]
  - Myocardial infarction [Unknown]
  - Nausea [Unknown]
  - Thirst [Unknown]

NARRATIVE: CASE EVENT DATE: 20150409
